FAERS Safety Report 8712083 (Version 3)
Quarter: 2013Q2

REPORT INFORMATION
  Report Type: Report from Study
  Country: JP (occurrence: JP)
  Receive Date: 20120807
  Receipt Date: 20130605
  Transmission Date: 20140414
  Serious: Yes (Death, Other)
  Sender: FDA-Public Use
  Company Number: JP-PFIZER INC-2012155244

PATIENT
  Age: 13 Month
  Sex: Female
  Weight: 5.1 kg

DRUGS (34)
  1. REVATIO [Suspect]
     Indication: PULMONARY ARTERIAL HYPERTENSION
     Dosage: 0.87 MG, 3X/DAY
     Route: 048
     Dates: start: 20110113, end: 20110202
  2. REVATIO [Suspect]
     Dosage: 2 MG, 3X/DAY
     Route: 048
     Dates: start: 20110202, end: 20110209
  3. REVATIO [Suspect]
     Dosage: 3 MG, 3X/DAY
     Route: 048
     Dates: start: 20110210, end: 20110220
  4. REVATIO [Suspect]
     Dosage: 3.67 MG, 3X/DAY
     Route: 048
     Dates: start: 20110221, end: 20110227
  5. REVATIO [Suspect]
     Dosage: 4.67 MG, 3X/DAY
     Route: 048
     Dates: start: 20110228, end: 20110307
  6. REVATIO [Suspect]
     Dosage: 5.67 MG, 3X/DAY
     Route: 048
     Dates: start: 20110308, end: 20110311
  7. REVATIO [Suspect]
     Dosage: 5 MG, 4X/DAY
     Route: 048
     Dates: start: 20110312, end: 20110315
  8. REVATIO [Suspect]
     Dosage: 2.5 MG, 8X/DAY
     Route: 048
     Dates: start: 20110316, end: 20110317
  9. REVATIO [Suspect]
     Dosage: 4 MG, 4X/DAY
     Route: 048
     Dates: start: 20110317, end: 20110317
  10. REVATIO [Suspect]
     Dosage: 3 MG, 4X/DAY
     Dates: start: 20110318, end: 20110318
  11. REVATIO [Suspect]
     Dosage: 1.5 MG, 4X/DAY
     Dates: start: 20110319, end: 201103
  12. REVATIO [Suspect]
     Dosage: 5.3 MG, UNK
     Dates: start: 20110317, end: 201103
  13. REVATIO [Suspect]
     Dosage: 6 MG, 4X/DAY
     Route: 048
     Dates: start: 20110323, end: 20110323
  14. LASIX [Suspect]
     Indication: CARDIAC FAILURE
     Dosage: 3.3 MG, 3X/DAY
     Route: 048
     Dates: end: 20110325
  15. LASIX [Suspect]
     Indication: CARDIAC FAILURE
     Dosage: 2 MG
     Route: 042
     Dates: start: 20110316, end: 20110325
  16. KEFRAL [Concomitant]
     Indication: INFECTION PROPHYLAXIS
     Dosage: 20 MG, 1X/DAY
     Route: 048
     Dates: end: 20110325
  17. ALDACTONE-A [Concomitant]
     Indication: CARDIAC FAILURE
     Dosage: 3.3 MG, 3X/DAY
     Route: 048
     Dates: end: 20110325
  18. THYRADIN [Concomitant]
     Indication: HYPERTHYROIDISM
     Dosage: 10 UG, 1X/DAY
     Route: 048
     Dates: end: 20110325
  19. ASPIRIN ^BAYER^ [Concomitant]
     Indication: SEPSIS
     Dosage: 5 MG, 2X/DAY
     Route: 048
     Dates: end: 20110325
  20. ASPIRIN ^BAYER^ [Concomitant]
     Indication: THROMBOSIS PROPHYLAXIS
  21. INOVAN [Concomitant]
     Indication: RESUSCITATION
     Dosage: 10 MCG/KG/MIN
     Route: 042
     Dates: start: 20110315, end: 20110325
  22. DOBUPUM [Concomitant]
     Indication: RESUSCITATION
     Dosage: 10 MCG/KG/MIN
     Route: 042
     Dates: start: 20110315, end: 20110325
  23. VOLIBRIS [Concomitant]
     Indication: PULMONARY HYPERTENSION
     Dosage: 0.5 MG, 1X/DAY
     Route: 048
     Dates: start: 20110315, end: 20110325
  24. MONILAC [Concomitant]
     Indication: CONSTIPATION
     Dosage: 2 ML, 3X/DAY
     Dates: start: 20110301, end: 20110324
  25. URONASE [Concomitant]
     Indication: THROMBOSIS
     Dosage: UNK
     Route: 042
     Dates: start: 20110309, end: 20110314
  26. SOSEGON [Concomitant]
     Indication: SEDATION
     Dosage: UNK
     Route: 042
     Dates: start: 20110324, end: 20110325
  27. DORMICUM FOR INJECTION [Concomitant]
     Indication: SEDATION
     Dosage: 3 MG/KG/HR
     Route: 042
     Dates: start: 201103, end: 20110325
  28. VENILON [Concomitant]
     Indication: SEPSIS
     Dosage: 500 MG, 1X/DAY
     Route: 042
     Dates: start: 20110319, end: 20110321
  29. WARFARIN [Concomitant]
     Indication: ANTICOAGULANT THERAPY
     Dosage: 1 MG, 1X/DAY
     Route: 048
     Dates: start: 20110310, end: 20110325
  30. WARFARIN [Concomitant]
     Indication: THROMBOSIS
  31. RENIVACE [Concomitant]
     Indication: CARDIAC FAILURE
     Dosage: 0.075 MG, 2X/DAY
     Route: 048
     Dates: start: 20110124, end: 20110325
  32. WAKOBITAL [Concomitant]
     Indication: SEDATION
     Dosage: 15 MG, 2X/DAY
     Route: 054
     Dates: start: 20110124, end: 20110325
  33. PRECEDEX [Concomitant]
     Indication: SEDATION
     Dosage: 0.7 MCG/KG/HR
     Route: 042
     Dates: start: 20110315, end: 20110325
  34. BOSMIN [Concomitant]
     Indication: RESUSCITATION
     Dosage: 0.05 MG, 1X/DAY
     Route: 042
     Dates: start: 20110315, end: 20110315

REACTIONS (3)
  - Cardiac failure [Fatal]
  - Multi-organ failure [Fatal]
  - Hypotension [Recovered/Resolved]
